FAERS Safety Report 6676895-8 (Version None)
Quarter: 2010Q2

REPORT INFORMATION
  Report Type: 
  Country: None (occurrence: None)
  Receive Date: 20100408
  Receipt Date: 20100324
  Transmission Date: 20101027
  Serious: Yes (Other)
  Sender: FDA-Public Use
  Company Number: 009541

PATIENT
  Age: 63 Year
  Sex: Female

DRUGS (6)
  1. LEVETIRACETAM [Suspect]
     Indication: EPILEPSY
     Dosage: (ORAL)
     Route: 048
     Dates: start: 20100101
  2. LAMOTRIGINE [Suspect]
     Indication: EPILEPSY
     Dosage: (75 MG BID ORAL)
     Route: 048
  3. AUGMENTIN '125' [Concomitant]
  4. DIFFU K [Concomitant]
  5. CORTANCYL [Concomitant]
  6. DAFALGAN /00020001/ [Concomitant]

REACTIONS (3)
  - AGRANULOCYTOSIS [None]
  - CREATININE RENAL CLEARANCE DECREASED [None]
  - THROMBOCYTOPENIA [None]
